FAERS Safety Report 14647478 (Version 2)
Quarter: 2018Q1

REPORT INFORMATION
  Report Type: Other
  Country: US (occurrence: US)
  Receive Date: 20180316
  Receipt Date: 20180326
  Transmission Date: 20180509
  Serious: Yes (Hospitalization)
  Sender: FDA-Public Use
  Company Number: US-ACORDA-ACO_147309_2018

PATIENT
  Age: 64 Year
  Sex: Female

DRUGS (1)
  1. AMPYRA [Suspect]
     Active Substance: DALFAMPRIDINE
     Indication: MULTIPLE SCLEROSIS
     Dosage: 10 MG, BID (Q12H)
     Route: 048

REACTIONS (2)
  - Arthralgia [Recovering/Resolving]
  - Meniscus injury [Not Recovered/Not Resolved]

NARRATIVE: CASE EVENT DATE: 201711
